FAERS Safety Report 9571145 (Version 2)
Quarter: 2013Q4

REPORT INFORMATION
  Report Type: Spontaneous
  Country: US (occurrence: US)
  Receive Date: 20131001
  Receipt Date: 20131213
  Transmission Date: 20140711
  Serious: Yes (Hospitalization, Other)
  Sender: FDA-Public Use
  Company Number: US-BAYER-2013-118074

PATIENT
  Age: 36 Year
  Sex: Female
  Weight: 74.83 kg

DRUGS (2)
  1. MIRENA [Suspect]
     Indication: CONTRACEPTION
     Dosage: 20 MCG/24HR, CONT
     Route: 015
     Dates: start: 20061031, end: 20100324
  2. CELEXA [Concomitant]
     Dosage: UNK
     Dates: start: 201111, end: 201301

REACTIONS (12)
  - Embedded device [None]
  - Genital haemorrhage [None]
  - Device dislocation [None]
  - Abdominal pain lower [None]
  - Menstruation irregular [None]
  - Dyspareunia [None]
  - Pelvic pain [None]
  - Uterine adhesions [None]
  - Medical device pain [None]
  - Injury [None]
  - Anxiety [None]
  - Device difficult to use [None]
